FAERS Safety Report 13420756 (Version 1)
Quarter: 2017Q2

REPORT INFORMATION
  Report Type: Spontaneous
  Country: US (occurrence: US)
  Receive Date: 20170409
  Receipt Date: 20170409
  Transmission Date: 20170830
  Serious: No
  Sender: FDA-Public Use
  Company Number: US-TEVA-756343ACC

PATIENT
  Sex: Female

DRUGS (9)
  1. CALCIUM [Concomitant]
     Active Substance: CALCIUM
  2. MULTIVITAMIN [Concomitant]
     Active Substance: VITAMINS
  3. VITAMIN D [Concomitant]
     Active Substance: CHOLECALCIFEROL
  4. BACLOFEN. [Concomitant]
     Active Substance: BACLOFEN
  5. COPAXONE [Suspect]
     Active Substance: GLATIRAMER ACETATE
     Indication: MULTIPLE SCLEROSIS
     Route: 058
  6. COPAXONE [Suspect]
     Active Substance: GLATIRAMER ACETATE
     Dates: start: 20090423
  7. NEURONTIN [Concomitant]
     Active Substance: GABAPENTIN
  8. PROLIA [Concomitant]
     Active Substance: DENOSUMAB
  9. DITROPAN [Concomitant]
     Active Substance: OXYBUTYNIN CHLORIDE

REACTIONS (1)
  - Hypoaesthesia [Unknown]
